FAERS Safety Report 5693222-3 (Version None)
Quarter: 2008Q2

REPORT INFORMATION
  Report Type: 
  Country: None (occurrence: None)
  Receive Date: 20080403
  Receipt Date: 20080325
  Transmission Date: 20081010
  Serious: Yes (Hospitalization)
  Sender: FDA-Public Use
  Company Number: PHHO2002IT05449

PATIENT
  Sex: Female
  Weight: 63 kg

DRUGS (1)
  1. TAMOXIFEN CITRATE [Suspect]
     Indication: BREAST CANCER
     Route: 048
     Dates: start: 20011127, end: 20030331

REACTIONS (4)
  - CHEST PAIN [None]
  - LUNG INFILTRATION [None]
  - PNEUMONITIS [None]
  - PYREXIA [None]
